FAERS Safety Report 22905748 (Version 3)
Quarter: 2023Q4

REPORT INFORMATION
  Report Type: Spontaneous
  Country: GB (occurrence: GB)
  Receive Date: 20230905
  Receipt Date: 20231102
  Transmission Date: 20240110
  Serious: Yes (Death, Other)
  Sender: FDA-Public Use
  Company Number: GB-MHRA-MED-202308231447376810-MJRNW

PATIENT
  Sex: Male

DRUGS (9)
  1. AMISULPRIDE [Suspect]
     Active Substance: AMISULPRIDE
     Indication: Adverse drug reaction
     Dosage: 300 MILLIGRAM, FOUR TIMES/DAY
     Route: 065
  2. AMISULPRIDE [Suspect]
     Active Substance: AMISULPRIDE
     Indication: Schizophrenia
  3. FLUOXETINE [Suspect]
     Active Substance: FLUOXETINE HYDROCHLORIDE
     Indication: Anxiety
     Dosage: 60 MILLIGRAM, ONCE A DAY
     Route: 065
  4. CLOZAPINE [Suspect]
     Active Substance: CLOZAPINE
     Indication: Adverse drug reaction
     Dosage: 325 MILLIGRAM, ONCE A DAY (125MG IN THE MORNING AND 200MG AT NIGHT)
     Route: 065
  5. CLOZAPINE [Suspect]
     Active Substance: CLOZAPINE
     Indication: Schizophrenia
  6. LORAZEPAM [Concomitant]
     Active Substance: LORAZEPAM
     Indication: Anxiety
     Dosage: UNK
     Route: 065
  7. LORAZEPAM [Concomitant]
     Active Substance: LORAZEPAM
     Dosage: 1 MILLIGRAM, TWO TIMES A DAY (AS NEEDED MAX 2MG IN 24HRS)
     Route: 065
  8. PREGABALIN [Concomitant]
     Active Substance: PREGABALIN
     Indication: Anxiety
     Dosage: UNK
     Route: 065
  9. PREGABALIN [Concomitant]
     Active Substance: PREGABALIN
     Dosage: 600 MILLIGRAM
     Route: 065

REACTIONS (5)
  - Toxicity to various agents [Fatal]
  - Unresponsive to stimuli [Fatal]
  - Death [Fatal]
  - Medication error [Unknown]
  - Drug interaction [Unknown]

NARRATIVE: CASE EVENT DATE: 20220729
